FAERS Safety Report 18876033 (Version 1)
Quarter: 2021Q1

REPORT INFORMATION
  Report Type: Other
  Country: KR (occurrence: KR)
  Receive Date: 20210211
  Receipt Date: 20210211
  Transmission Date: 20210420
  Serious: Yes (Other)
  Sender: FDA-Public Use
  Company Number: KR-ROCHE-2766279

PATIENT

DRUGS (4)
  1. ALTEPLASE. [Suspect]
     Active Substance: ALTEPLASE
     Indication: RETINAL HAEMORRHAGE
     Dosage: DOSE: INTRAVITREAL TPA (50 G/0.05 ML)  FREQUENCY: 1, FREQUENCY UNIT: 809
     Route: 065
  2. OCTAFLUOROPROPANE [Suspect]
     Active Substance: PERFLUTREN
     Indication: RETINAL HAEMORRHAGE
     Dosage: DOSE: PERFLUOROPROPANE GAS (0.3 ML) INJECTION.
     Route: 065
  3. OCTAFLUOROPROPANE [Suspect]
     Active Substance: PERFLUTREN
     Indication: AGE-RELATED MACULAR DEGENERATION
  4. ALTEPLASE. [Suspect]
     Active Substance: ALTEPLASE
     Indication: AGE-RELATED MACULAR DEGENERATION

REACTIONS (1)
  - Rhegmatogenous retinal detachment [Unknown]
